FAERS Safety Report 26057108 (Version 1)
Quarter: 2025Q4

REPORT INFORMATION
  Report Type: Spontaneous
  Country: US (occurrence: US)
  Receive Date: 20251118
  Receipt Date: 20251118
  Transmission Date: 20260117
  Serious: No
  Sender: AMNEAL
  Company Number: US-AMNEAL PHARMACEUTICALS-2025-AMRX-01970

PATIENT
  Age: 20 Year

DRUGS (2)
  1. ISOTRETINOIN [Suspect]
     Active Substance: ISOTRETINOIN
     Indication: Product used for unknown indication
     Dosage: 40 MILLIGRAM
     Route: 065
     Dates: start: 20220218
  2. TESTOSTERONE [Suspect]
     Active Substance: TESTOSTERONE
     Indication: Product used for unknown indication
     Dosage: UNK
     Route: 065

REACTIONS (6)
  - Fat redistribution [Unknown]
  - Intermenstrual bleeding [Recovered/Resolved]
  - Dysphonia [Unknown]
  - Hair growth abnormal [Unknown]
  - Acne [Unknown]
  - Pain [Unknown]

NARRATIVE: CASE EVENT DATE: 20220413
